FAERS Safety Report 9831643 (Version 2)
Quarter: 2014Q1

REPORT INFORMATION
  Report Type: Spontaneous
  Country: US (occurrence: US)
  Receive Date: 20140121
  Receipt Date: 20140210
  Transmission Date: 20141002
  Serious: No
  Sender: FDA-Public Use
  Company Number: US-PFIZER INC-2014016336

PATIENT
  Age: 40 Year
  Sex: Female
  Weight: 129 kg

DRUGS (10)
  1. EFFEXOR XR [Suspect]
     Indication: DEPRESSION
     Dosage: 225 MG (ONE 150 MG CAPSULE AND ONE 75MG CAPSULE AT A TIME), 1X/DAY
  2. EFFEXOR XR [Suspect]
     Indication: POST-TRAUMATIC STRESS DISORDER
  3. EFFEXOR XR [Suspect]
     Indication: ANXIETY
  4. EFFEXOR XR [Suspect]
     Indication: PANIC ATTACK
  5. LIPITOR [Concomitant]
     Indication: BLOOD CHOLESTEROL INCREASED
     Dosage: 20 MG, DAILY
  6. SKELAXIN [Concomitant]
     Indication: BACK PAIN
     Dosage: 800 MG, 2X/DAY
  7. SKELAXIN [Concomitant]
     Indication: PAIN IN EXTREMITY
  8. SKELAXIN [Concomitant]
     Indication: INTERVERTEBRAL DISC PROTRUSION
  9. METFORMIN [Concomitant]
     Indication: DIABETES MELLITUS
     Dosage: 500 MG, 2X/DAY
  10. ARAVA [Concomitant]
     Indication: PSORIATIC ARTHROPATHY
     Dosage: 20 MG, DAILY

REACTIONS (3)
  - Depression [Unknown]
  - Affect lability [Unknown]
  - Crying [Unknown]
